FAERS Safety Report 11914516 (Version 2)
Quarter: 2016Q1

REPORT INFORMATION
  Report Type: Spontaneous
  Country: NL (occurrence: NL)
  Receive Date: 20160113
  Receipt Date: 20160120
  Transmission Date: 20160526
  Serious: Yes (Hospitalization)
  Sender: FDA-Public Use
  Company Number: NL-TEVA-624020ACC

PATIENT
  Age: 39 Year
  Sex: Male
  Weight: 85 kg

DRUGS (6)
  1. DEXAMETHASON [Concomitant]
     Active Substance: DEXAMETHASONE
     Dosage: ONCE 8 MG
     Route: 065
     Dates: start: 20151208, end: 20151208
  2. METOCLOPRAMIDE TABLET 10MG [Concomitant]
     Active Substance: METOCLOPRAMIDE
     Dosage: 30 MILLIGRAM DAILY; AS REQUIRED 3 TIMES DAILY
     Route: 065
     Dates: start: 20151208, end: 20151215
  3. CARBOPLATINE INFUUS [Suspect]
     Active Substance: CARBOPLATIN
     Indication: SEMINOMA
     Dosage: ONCE 1200 MG
     Route: 042
     Dates: start: 20151208, end: 20151208
  4. MEBEVERINE CAPSULE MGA 200MG [Concomitant]
     Dosage: 2 DOSAGE FORMS DAILY; 2 DOSAGE FORM; DOSE NOT FILLED IN
     Route: 048
     Dates: start: 20151111
  5. KALIUMCHLORIDE [Concomitant]
     Dosage: ONCE 1 GRAM
     Route: 042
     Dates: start: 20151208
  6. ONDANSETRON TABLET 8MG [Concomitant]
     Dosage: 8 MG ONCE
     Route: 065
     Dates: start: 20151208

REACTIONS (1)
  - Seizure [Recovered/Resolved]

NARRATIVE: CASE EVENT DATE: 20151211
